FAERS Safety Report 14101770 (Version 9)
Quarter: 2018Q4

REPORT INFORMATION
  Report Type: Report from Study
  Country: CA (occurrence: CA)
  Receive Date: 20171018
  Receipt Date: 20181108
  Transmission Date: 20190204
  Serious: Yes (Life-Threatening, Hospitalization, Other)
  Sender: FDA-Public Use
  Company Number: PHHY2012CA123535

PATIENT
  Age: 37 Year
  Sex: Female

DRUGS (11)
  1. SANDOSTATIN LAR DEPOT [Suspect]
     Active Substance: OCTREOTIDE ACETATE
     Dosage: 60 MG, QMO (EVERY FOUR WEEKS)
     Route: 030
     Dates: start: 20140724
  2. SANDOSTATIN LAR DEPOT [Suspect]
     Active Substance: OCTREOTIDE ACETATE
     Dosage: 30 MG, QMO (EVERY 4 WEEKS)
     Route: 030
     Dates: start: 20160601
  3. FERAMAX [Concomitant]
     Active Substance: IRON\POLYSACCHARIDES
     Indication: PRODUCT USED FOR UNKNOWN INDICATION
     Dosage: 150 MG, QD
     Route: 065
     Dates: start: 20170505
  4. SANDOSTATIN LAR DEPOT [Suspect]
     Active Substance: OCTREOTIDE ACETATE
     Indication: ACROMEGALY
     Dosage: 30 MG, (QMO) EVERY 4 WEEKS
     Route: 030
     Dates: start: 20050824
  5. SANDOSTATIN LAR DEPOT [Suspect]
     Active Substance: OCTREOTIDE ACETATE
     Dosage: 30 MG, QMO (ONCE A MONTH)
     Route: 030
     Dates: start: 20100318
  6. PEGVISOMANT [Concomitant]
     Active Substance: PEGVISOMANT
     Indication: PRODUCT USED FOR UNKNOWN INDICATION
     Route: 065
  7. SANDOSTATIN LAR DEPOT [Suspect]
     Active Substance: OCTREOTIDE ACETATE
     Dosage: 40 MG, QMO (EVERY 28 WEEKS)
     Route: 030
     Dates: start: 20160618
  8. SANDOSTATIN LAR DEPOT [Suspect]
     Active Substance: OCTREOTIDE ACETATE
     Dosage: UNK
     Route: 030
     Dates: start: 20170928
  9. SANDOSTATIN LAR DEPOT [Suspect]
     Active Substance: OCTREOTIDE ACETATE
     Dosage: 40 MG, QMO (EVERY 4 WEEKS)
     Route: 030
     Dates: start: 20110120
  10. SANDOSTATIN LAR DEPOT [Suspect]
     Active Substance: OCTREOTIDE ACETATE
     Dosage: 30 MG, QMO (EVERY 4 WEEKS)
     Route: 030
     Dates: start: 20160503
  11. SANDOSTATIN LAR DEPOT [Suspect]
     Active Substance: OCTREOTIDE ACETATE
     Dosage: 30 MG, QMO (EVERY 4 WEEKS)
     Route: 030

REACTIONS (24)
  - Heart rate irregular [Unknown]
  - Ventricular extrasystoles [Unknown]
  - Injection site haemorrhage [Unknown]
  - Blood growth hormone decreased [Unknown]
  - Hyperventilation [Unknown]
  - Injection site mass [Recovering/Resolving]
  - Blood pressure increased [Unknown]
  - Injection site pain [Unknown]
  - Blood pressure systolic increased [Unknown]
  - Syncope [Unknown]
  - Skin discolouration [Unknown]
  - Anaemia [Unknown]
  - Menorrhagia [Unknown]
  - Dry skin [Unknown]
  - Underdose [Unknown]
  - Procedural pain [Unknown]
  - Dyspnoea [Unknown]
  - Renal cancer stage I [Recovered/Resolved]
  - Dizziness [Unknown]
  - Stress [Not Recovered/Not Resolved]
  - Menstrual disorder [Unknown]
  - Syringe issue [Unknown]
  - Heart rate increased [Unknown]
  - Pruritus [Unknown]

NARRATIVE: CASE EVENT DATE: 20141016
